FAERS Safety Report 8211840-5 (Version None)
Quarter: 2012Q1

REPORT INFORMATION
  Report Type: 
  Country: None (occurrence: None)
  Receive Date: 20120315
  Receipt Date: 20120313
  Transmission Date: 20120608
  Serious: Yes (Death)
  Sender: FDA-Public Use
  Company Number: JP-B.I. PHARMACEUTICALS,INC./RIDGEFIELD-2012-BP-04898NB

PATIENT
  Age: 86 Year
  Sex: Male

DRUGS (6)
  1. SCOPOLIA EXTRACT [Concomitant]
     Indication: DIARRHOEA
     Route: 048
  2. ALPRAZOLAM [Concomitant]
     Indication: MOOD SWINGS
     Route: 048
  3. MIYA BM [Concomitant]
     Indication: DIARRHOEA
     Route: 065
     Dates: start: 20110930
  4. CODEINE PHOSPHATE [Concomitant]
     Indication: DIARRHOEA
     Route: 065
  5. LOPERAMIDE HCL [Concomitant]
     Indication: DIARRHOEA
     Route: 048
  6. MICARDIS [Suspect]
     Indication: BLOOD PRESSURE INCREASED
     Dosage: 40 MG
     Route: 048
     Dates: start: 20111125, end: 20120106

REACTIONS (6)
  - ASCITES [None]
  - BLOOD URIC ACID INCREASED [None]
  - DIZZINESS [None]
  - HEPATIC NEOPLASM MALIGNANT [None]
  - HERPES ZOSTER [None]
  - BLOOD POTASSIUM DECREASED [None]
